FAERS Safety Report 25059701 (Version 1)
Quarter: 2025Q1

REPORT INFORMATION
  Report Type: Spontaneous
  Country: CZ (occurrence: CZ)
  Receive Date: 20250310
  Receipt Date: 20250310
  Transmission Date: 20250409
  Serious: Yes (Death, Hospitalization, Other)
  Sender: MERCK SHARP & DOHME LLC
  Company Number: CZ-009507513-2260018

PATIENT
  Age: 84 Year
  Sex: Male

DRUGS (4)
  1. PEMBROLIZUMAB [Suspect]
     Active Substance: PEMBROLIZUMAB
     Indication: Malignant melanoma
     Dosage: DOSAGE: 200 MG/G
     Route: 042
     Dates: start: 20200716, end: 20200925
  2. PEMBROLIZUMAB [Suspect]
     Active Substance: PEMBROLIZUMAB
     Indication: Malignant melanoma
     Dosage: DOSAGE: 200 MG/G
     Route: 042
     Dates: end: 20220214
  3. HYDROCHLOROTHIAZIDE\LOSARTAN POTASSIUM [Concomitant]
     Active Substance: HYDROCHLOROTHIAZIDE\LOSARTAN POTASSIUM
  4. METOPROLOL [Concomitant]
     Active Substance: METOPROLOL

REACTIONS (9)
  - Pulmonary embolism [Unknown]
  - Dyspnoea exertional [Unknown]
  - Anticoagulant therapy [Unknown]
  - Pulmonary mass [Unknown]
  - Death [Fatal]
  - Lung consolidation [Unknown]
  - Inflammation [Unknown]
  - Pleural effusion [Unknown]
  - Lymphadenopathy [Unknown]

NARRATIVE: CASE EVENT DATE: 20201016
